FAERS Safety Report 14941697 (Version 1)
Quarter: 2018Q2

REPORT INFORMATION
  Report Type: Report from Study
  Country: US (occurrence: US)
  Receive Date: 20180526
  Receipt Date: 20180526
  Transmission Date: 20180711
  Serious: No
  Sender: FDA-Public Use
  Company Number: PHEH2018US020525

PATIENT
  Age: 37 Year
  Sex: Female

DRUGS (1)
  1. COSENTYX [Suspect]
     Active Substance: SECUKINUMAB
     Indication: PSORIASIS
     Dosage: 30 MG, QMO
     Route: 058
     Dates: start: 20180222

REACTIONS (2)
  - Dry skin [Unknown]
  - Burning sensation [Unknown]

NARRATIVE: CASE EVENT DATE: 20180508
